FAERS Safety Report 5397244-1 (Version None)
Quarter: 2007Q3

REPORT INFORMATION
  Report Type: 
  Country: None (occurrence: None)
  Receive Date: 20070723
  Receipt Date: 20070712
  Transmission Date: 20080115
  Serious: Yes (Death, Hospitalization)
  Sender: FDA-Public Use
  Company Number: 062-20785-06070255

PATIENT
  Age: 74 Year
  Sex: Male

DRUGS (12)
  1. THALIDOMIDE [Suspect]
     Indication: LEUKAEMIA PLASMACYTIC
     Dosage: 50 MG, 1 IN 1 D, ORAL
     Route: 048
     Dates: start: 20060213, end: 20060501
  2. THALIDOMIDE [Suspect]
     Indication: LEUKAEMIA PLASMACYTIC
     Dosage: 50 MG, 1 IN 1 D, ORAL
     Route: 048
     Dates: start: 20061001, end: 20070530
  3. VELCADE [Suspect]
     Indication: LEUKAEMIA PLASMACYTIC
     Dates: start: 20060120, end: 20060131
  4. VINCRISTINE [Suspect]
     Indication: LEUKAEMIA PLASMACYTIC
     Dosage: 1 MG
     Dates: start: 20060109, end: 20060117
  5. BENDAMUSTIN (BENDAMUSTINE) [Concomitant]
  6. ADRIAMYCIN PFS [Concomitant]
  7. ASS (ASPIRIN) (ACETYLSALICYLIC ACID) [Concomitant]
  8. PLAVIX [Concomitant]
  9. METOPROLOL SUCCINATE [Concomitant]
  10. ATORVASTATIN CALCIUM [Concomitant]
  11. BACTRIM DS [Concomitant]
  12. CILASTATIN (CILASTATIN) [Concomitant]

REACTIONS (36)
  - ANGIOCENTRIC LYMPHOMA [None]
  - BIOPSY BONE MARROW ABNORMAL [None]
  - BLOOD IMMUNOGLOBULIN A INCREASED [None]
  - BLOOD LACTATE DEHYDROGENASE INCREASED [None]
  - BLOOD VISCOSITY INCREASED [None]
  - CARDIOMEGALY [None]
  - CHEST DISCOMFORT [None]
  - CHEST X-RAY ABNORMAL [None]
  - CONDITION AGGRAVATED [None]
  - COR PULMONALE ACUTE [None]
  - DEPRESSED LEVEL OF CONSCIOUSNESS [None]
  - DILATATION ATRIAL [None]
  - DILATATION VENTRICULAR [None]
  - DISEASE PROGRESSION [None]
  - DYSPNOEA EXERTIONAL [None]
  - GALLOP RHYTHM PRESENT [None]
  - GENERAL PHYSICAL HEALTH DETERIORATION [None]
  - HYPERVISCOSITY SYNDROME [None]
  - LIGHT CHAIN ANALYSIS INCREASED [None]
  - LUNG INFILTRATION [None]
  - MENINGITIS [None]
  - OEDEMA PERIPHERAL [None]
  - PANCYTOPENIA [None]
  - PERFORMANCE STATUS DECREASED [None]
  - PLASMACYTOMA [None]
  - POLYNEUROPATHY [None]
  - PULMONARY ARTERIAL PRESSURE INCREASED [None]
  - PULMONARY CONGESTION [None]
  - PULMONARY HYPERTENSION [None]
  - RALES [None]
  - RESPIRATORY FAILURE [None]
  - RIB FRACTURE [None]
  - RIGHT ATRIAL HYPERTROPHY [None]
  - RIGHT VENTRICULAR HYPERTROPHY [None]
  - SOMNOLENCE [None]
  - VASCULAR RESISTANCE PULMONARY INCREASED [None]
